FAERS Safety Report 7163818-0 (Version None)
Quarter: 2010Q4

REPORT INFORMATION
  Report Type: 
  Country: None (occurrence: None)
  Receive Date: 20101215
  Receipt Date: 20100617
  Transmission Date: 20110411
  Serious: Yes (Other)
  Sender: FDA-Public Use
  Company Number: NO-PFIZER INC-2010068363

PATIENT
  Sex: Female

DRUGS (11)
  1. LYRICA [Suspect]
     Indication: EPILEPSY
     Dosage: 150 MG, 2X/DAY
  2. LYRICA [Suspect]
     Dosage: 150 MG, 3X/DAY
  3. LYRICA [Suspect]
     Dosage: 300 MG, 2X/DAY
  4. AFIPRAN [Concomitant]
     Dosage: UNK
  5. SOBRIL [Concomitant]
     Indication: ANXIETY
     Dosage: 15 MG, 2X/DAY
  6. SOBRIL [Concomitant]
     Indication: SLEEP DISORDER
  7. SOBRIL [Concomitant]
     Indication: RESTLESSNESS
  8. MOGADON [Concomitant]
     Indication: SLEEP DISORDER
     Dosage: 7.5 MG, 1X/DAY
  9. ZOPICLONE [Concomitant]
     Indication: INSOMNIA
     Dosage: UNK
  10. PROMETHAZINE [Concomitant]
     Indication: INSOMNIA
  11. QUETIAPINE [Concomitant]
     Indication: SEDATION
     Dosage: 50 MG, 1X/DAY IN EVENING

REACTIONS (4)
  - DRUG DEPENDENCE [None]
  - DYSARTHRIA [None]
  - EUPHORIC MOOD [None]
  - LISTLESS [None]
